FAERS Safety Report 5909956-9 (Version None)
Quarter: 2008Q4

REPORT INFORMATION
  Report Type: 
  Country: None (occurrence: None)
  Receive Date: 20081006
  Receipt Date: 20081006
  Transmission Date: 20090506
  Serious: Yes (Life-Threatening, Other)
  Sender: FDA-Public Use
  Company Number: None

PATIENT
  Age: 34 Year
  Sex: Female
  Weight: 92.9874 kg

DRUGS (2)
  1. ZONISAMIDE [Suspect]
     Indication: CONVULSION PROPHYLAXIS
     Dosage: 600MG DAILY PO
     Route: 048
     Dates: start: 20080502, end: 20080610
  2. ZONISAMIDE [Suspect]
     Indication: CONVULSION PROPHYLAXIS
     Dosage: 600MG DAILY PO
     Route: 048
     Dates: start: 20080902, end: 20081002

REACTIONS (8)
  - DISTURBANCE IN ATTENTION [None]
  - GAIT DISTURBANCE [None]
  - HYPERTENSION [None]
  - HYPOAESTHESIA [None]
  - ILL-DEFINED DISORDER [None]
  - MOVEMENT DISORDER [None]
  - PRODUCT QUALITY ISSUE [None]
  - VERTIGO [None]
